FAERS Safety Report 16182786 (Version 1)
Quarter: 2019Q2

REPORT INFORMATION
  Report Type: Spontaneous
  Country: US (occurrence: US)
  Receive Date: 20190411
  Receipt Date: 20190411
  Transmission Date: 20190711
  Serious: Yes (Life-Threatening, Hospitalization, Other)
  Sender: FDA-Public Use
  Company Number: US-LUPIN PHARMACEUTICALS INC.-2019-02273

PATIENT
  Age: 49 Year
  Sex: Male

DRUGS (5)
  1. METHYLENE BLUE. [Interacting]
     Active Substance: METHYLENE BLUE
     Indication: HYPOTENSION
     Dosage: 0.5 MILLIGRAM/KILOGRAM PER HOUR
     Route: 065
  2. HYDRALAZINE [Suspect]
     Active Substance: HYDRALAZINE HYDROCHLORIDE
     Indication: PRODUCT USED FOR UNKNOWN INDICATION
     Dosage: UNK UNK, SINGLE (AN EMPTY BOTTLE OF HYDRALAZINE)
     Route: 065
  3. CARVEDILOL TABLETS [Suspect]
     Active Substance: CARVEDILOL
     Indication: PRODUCT USED FOR UNKNOWN INDICATION
     Dosage: UNK UNK, SINGLE (HALF-EMPTY BOTTLE OF CARVEDILOL)
     Route: 065
  4. METHYLENE BLUE. [Interacting]
     Active Substance: METHYLENE BLUE
     Dosage: BOLUS
     Route: 065
  5. CITALOPRAM [Interacting]
     Active Substance: CITALOPRAM HYDROBROMIDE
     Indication: DEPRESSION
     Dosage: UNK
     Route: 065

REACTIONS (10)
  - Serotonin syndrome [Recovered/Resolved]
  - Muscle rigidity [Recovered/Resolved]
  - Hyperreflexia [Recovered/Resolved]
  - Blood creatinine increased [Recovered/Resolved]
  - Somnolence [Recovering/Resolving]
  - Overdose [Unknown]
  - Hypotension [Recovering/Resolving]
  - Blood creatine phosphokinase increased [Recovered/Resolved]
  - Drug interaction [Unknown]
  - Hyperthermia [Recovered/Resolved]
